FAERS Safety Report 4874604-6 (Version None)
Quarter: 2006Q1

REPORT INFORMATION
  Report Type: 
  Country: None (occurrence: None)
  Receive Date: 20060106
  Receipt Date: 20051230
  Transmission Date: 20060701
  Serious: Yes (Hospitalization)
  Sender: FDA-Public Use
  Company Number: FR-MERCK-0601FRA00004

PATIENT
  Age: 80 Year
  Sex: Female
  Weight: 67 kg

DRUGS (7)
  1. FOSAMAX [Suspect]
     Indication: OSTEOPOROSIS
     Route: 048
     Dates: end: 20051026
  2. SPIRONOLACTONE [Suspect]
     Indication: HYPERTENSION
     Route: 048
     Dates: end: 20051001
  3. ASPIRIN LYSINE [Concomitant]
     Route: 048
  4. METFORMIN HYDROCHLORIDE [Concomitant]
     Indication: DIABETES MELLITUS
     Route: 048
  5. FUROSEMIDE [Concomitant]
     Indication: HYPERTENSION
     Route: 048
  6. NICORANDIL [Concomitant]
     Indication: ANGINA PECTORIS
     Route: 048
  7. PANTOPRAZOLE [Concomitant]
     Route: 048

REACTIONS (4)
  - ANOREXIA [None]
  - ASTHENIA [None]
  - DEHYDRATION [None]
  - HYPONATRAEMIA [None]
